FAERS Safety Report 6965452-1 (Version None)
Quarter: 2010Q3

REPORT INFORMATION
  Report Type: 
  Country: None (occurrence: None)
  Receive Date: 20100903
  Receipt Date: 20100827
  Transmission Date: 20110219
  Serious: Yes (Other)
  Sender: FDA-Public Use
  Company Number: A0879311A

PATIENT
  Sex: Male

DRUGS (1)
  1. AVANDIA [Suspect]
     Dates: end: 20090601

REACTIONS (4)
  - CARDIAC ARREST [None]
  - CARDIAC VALVE DISEASE [None]
  - PROSTATE CANCER [None]
  - RESPIRATORY ARREST [None]
